FAERS Safety Report 6062195-6 (Version None)
Quarter: 2009Q1

REPORT INFORMATION
  Report Type: 
  Country: None (occurrence: None)
  Receive Date: 20090203
  Receipt Date: 20090130
  Transmission Date: 20090719
  Serious: Yes (Death)
  Sender: FDA-Public Use
  Company Number: FR-JNJFOC-20090200149

PATIENT
  Age: 80 Year
  Sex: Male

DRUGS (10)
  1. TAVANIC [Suspect]
     Indication: BRONCHITIS
     Route: 048
  2. AMLOD [Concomitant]
     Route: 048
  3. BRONCHODUAL [Concomitant]
     Indication: BRONCHITIS
     Route: 055
  4. SYMBICORT [Concomitant]
     Indication: BRONCHITIS
     Route: 055
  5. LOSARTAN POTASSIUM AND HYDROCHLOROTHIAZIDE [Concomitant]
     Indication: HYPERTENSION
     Route: 048
  6. LASILIX [Concomitant]
     Route: 065
  7. VASTEN [Concomitant]
     Route: 065
  8. PLAVIX [Concomitant]
     Route: 065
  9. KARDEGIC [Concomitant]
     Route: 065
  10. KREDEX [Concomitant]
     Route: 065

REACTIONS (2)
  - CARDIAC ARREST [None]
  - VENTRICULAR TACHYCARDIA [None]
